FAERS Safety Report 22243292 (Version 1)
Quarter: 2023Q2

REPORT INFORMATION
  Report Type: Spontaneous
  Country: CA (occurrence: CA)
  Receive Date: 20230424
  Receipt Date: 20230424
  Transmission Date: 20230722
  Serious: Yes (Death, Other)
  Sender: FDA-Public Use
  Company Number: CA-AUROBINDO-AUR-APL-2023-031947

PATIENT
  Sex: Male

DRUGS (2)
  1. CIPROFLOXACIN [Suspect]
     Active Substance: CIPROFLOXACIN
     Indication: Product used for unknown indication
     Dosage: UNK
     Route: 048
  2. ENFORTUMAB VEDOTIN [Concomitant]
     Active Substance: ENFORTUMAB VEDOTIN
     Indication: Bladder transitional cell carcinoma metastatic
     Dosage: UNK
     Route: 065

REACTIONS (6)
  - Death [Fatal]
  - Decreased appetite [Fatal]
  - Dyspnoea [Fatal]
  - Fatigue [Fatal]
  - Malaise [Fatal]
  - Urinary tract infection [Fatal]
